FAERS Safety Report 18931404 (Version 6)
Quarter: 2022Q1

REPORT INFORMATION
  Report Type: Report from Study
  Country: US (occurrence: US)
  Receive Date: 20210223
  Receipt Date: 20220130
  Transmission Date: 20220423
  Serious: Yes (Other)
  Sender: FDA-Public Use
  Company Number: US-JAZZ-2020-US-004936

PATIENT
  Sex: Female
  Weight: 62.585 kg

DRUGS (20)
  1. XYREM [Suspect]
     Active Substance: SODIUM OXYBATE
     Indication: Narcolepsy
     Dosage: 2.25 GRAM, BID
     Route: 048
     Dates: start: 202003, end: 202004
  2. XYREM [Suspect]
     Active Substance: SODIUM OXYBATE
     Dosage: 3 GRAM,BID
     Route: 048
     Dates: start: 202004, end: 202004
  3. XYREM [Suspect]
     Active Substance: SODIUM OXYBATE
     Dosage: 4.5 GRAM, BID
     Route: 048
     Dates: start: 202004, end: 2020
  4. XYREM [Suspect]
     Active Substance: SODIUM OXYBATE
     Dosage: 3 GRAM
     Route: 048
     Dates: start: 202004, end: 2020
  5. XYREM [Suspect]
     Active Substance: SODIUM OXYBATE
     Dosage: 3.75 GRAM ONCE NIGHTLY
     Route: 048
     Dates: start: 202004, end: 202005
  6. XYREM [Suspect]
     Active Substance: SODIUM OXYBATE
     Dosage: 4 GRAM, ONCE NIGHTLY
     Route: 048
     Dates: start: 202005, end: 2020
  7. XYREM [Suspect]
     Active Substance: SODIUM OXYBATE
     Dosage: 4.5 GRAM, QD
     Route: 048
     Dates: start: 2020, end: 2020
  8. XYREM [Suspect]
     Active Substance: SODIUM OXYBATE
     Dosage: 4.25 GRAM, QD
     Route: 048
     Dates: start: 2020, end: 2020
  9. XYREM [Suspect]
     Active Substance: SODIUM OXYBATE
     Dosage: 4.5 GRAM ONCE NIGHTLY
     Route: 048
     Dates: start: 2020, end: 2020
  10. XYREM [Suspect]
     Active Substance: SODIUM OXYBATE
     Dosage: 3 GM ONCE AT BEDTIME
     Route: 048
     Dates: start: 202006, end: 2020
  11. XYREM [Suspect]
     Active Substance: SODIUM OXYBATE
     Dosage: 3.25 GRAM, QD
     Route: 048
     Dates: start: 2020
  12. XYREM [Suspect]
     Active Substance: SODIUM OXYBATE
     Dosage: 4.5 GRAM, QD
     Route: 048
     Dates: start: 20200731
  13. XYWAV [Suspect]
     Active Substance: CALCIUM OXYBATE\MAGNESIUM OXYBATE\POTASSIUM OXYBATE\SODIUM OXYBATE
     Indication: Narcolepsy
     Dosage: UNK
     Route: 048
  14. ADDERALL [Concomitant]
     Active Substance: AMPHETAMINE ASPARTATE\AMPHETAMINE SULFATE\DEXTROAMPHETAMINE SACCHARATE\DEXTROAMPHETAMINE SULFATE
     Indication: Product used for unknown indication
  15. CYMBALTA [Concomitant]
     Active Substance: DULOXETINE HYDROCHLORIDE
     Indication: Product used for unknown indication
  16. IMITREX [Concomitant]
     Active Substance: SUMATRIPTAN SUCCINATE
     Indication: Product used for unknown indication
  17. NAPROXEN SODIUM [Concomitant]
     Active Substance: NAPROXEN SODIUM
     Indication: Product used for unknown indication
  18. TOBRADEX [Concomitant]
     Active Substance: DEXAMETHASONE\TOBRAMYCIN
     Indication: Product used for unknown indication
  19. TOPIRAMATE [Concomitant]
     Active Substance: TOPIRAMATE
     Indication: Product used for unknown indication
  20. VYVANSE [Concomitant]
     Active Substance: LISDEXAMFETAMINE DIMESYLATE
     Indication: Product used for unknown indication

REACTIONS (18)
  - Weight decreased [Recovered/Resolved]
  - Decreased appetite [Recovered/Resolved]
  - Dizziness [Unknown]
  - Eructation [Not Recovered/Not Resolved]
  - Contusion [Not Recovered/Not Resolved]
  - Glossitis [Not Recovered/Not Resolved]
  - Dysgeusia [Recovered/Resolved]
  - Gastrooesophageal reflux disease [Unknown]
  - Arthralgia [Not Recovered/Not Resolved]
  - Abnormal sleep-related event [Unknown]
  - Confusional state [Unknown]
  - Retching [Not Recovered/Not Resolved]
  - Nausea [Not Recovered/Not Resolved]
  - Vomiting [Recovered/Resolved]
  - Dry mouth [Not Recovered/Not Resolved]
  - Drug ineffective [Not Recovered/Not Resolved]
  - Intentional dose omission [Unknown]
  - Intentional product use issue [Unknown]

NARRATIVE: CASE EVENT DATE: 20200101
